FAERS Safety Report 4877820-2 (Version None)
Quarter: 2006Q1

REPORT INFORMATION
  Report Type: 
  Country: None (occurrence: None)
  Receive Date: 20060109
  Receipt Date: 20051227
  Transmission Date: 20060701
  Serious: Yes (Other)
  Sender: FDA-Public Use
  Company Number: US-2005-025304

PATIENT
  Age: 40 Year
  Sex: Female
  Weight: 90.7 kg

DRUGS (4)
  1. BETASERON [Suspect]
     Indication: MULTIPLE SCLEROSIS
     Dosage: 8 MIU, EVERY 2D, SUBCUTANEOUS
     Route: 058
     Dates: start: 20050628
  2. NEURONTIN [Concomitant]
  3. SINEMET [Concomitant]
  4. LEXAPRO [Concomitant]

REACTIONS (10)
  - CLUMSINESS [None]
  - CONVULSION [None]
  - CORNEAL REFLEX DECREASED [None]
  - DISTURBANCE IN ATTENTION [None]
  - EYE MOVEMENT DISORDER [None]
  - FATIGUE [None]
  - MUSCLE TWITCHING [None]
  - TONGUE DISORDER [None]
  - TREMOR [None]
  - VISION BLURRED [None]
